FAERS Safety Report 9266874 (Version 1)
Quarter: 2013Q2

REPORT INFORMATION
  Report Type: Spontaneous
  Country: IT (occurrence: IT)
  Receive Date: 20130502
  Receipt Date: 20130502
  Transmission Date: 20140414
  Serious: Yes (Life-Threatening)
  Sender: FDA-Public Use
  Company Number: IT-CELGENEUS-083-21660-13043924

PATIENT
  Age: 56 Year
  Sex: Female

DRUGS (2)
  1. ABRAXANE [Suspect]
     Indication: BREAST CANCER
     Route: 041
     Dates: start: 20130314, end: 20130314
  2. LENOGRASTIM [Concomitant]
     Indication: FEBRILE NEUTROPENIA
     Route: 065
     Dates: start: 20130317, end: 20130319

REACTIONS (4)
  - Hypertension [Unknown]
  - Grand mal convulsion [Unknown]
  - Hyperglycaemia [Unknown]
  - Asthenia [Unknown]
